FAERS Safety Report 15378485 (Version 1)
Quarter: 2018Q3

REPORT INFORMATION
  Report Type: Spontaneous
  Country: ID (occurrence: NZ)
  Receive Date: 20180913
  Receipt Date: 20180913
  Transmission Date: 20181010
  Serious: Yes (Hospitalization, Other)
  Sender: FDA-Public Use
  Company Number: ID-SA-2018SA247836

PATIENT
  Age: 56 Year
  Sex: Female
  Weight: 67 kg

DRUGS (5)
  1. RIAMET [Concomitant]
     Active Substance: ARTEMETHER\LUMEFANTRINE
     Indication: PLASMODIUM MALARIAE INFECTION
     Dosage: 4 TABLETS TWICE DAILY FOR 3 DAYS
  2. PRIMAQUINE [Suspect]
     Active Substance: PRIMAQUINE PHOSPHATE
     Dosage: 30 MG, QD
  3. PRIMAQUINE [Suspect]
     Active Substance: PRIMAQUINE PHOSPHATE
     Indication: PLASMODIUM MALARIAE INFECTION
     Dosage: UNK
  4. MALARONE [Concomitant]
     Active Substance: ATOVAQUONE\PROGUANIL HYDROCHLORIDE
     Indication: PLASMODIUM MALARIAE INFECTION
     Dosage: 4 TABLETS/DAY
  5. PRIMAQUINE [Suspect]
     Active Substance: PRIMAQUINE PHOSPHATE
     Dosage: 45 MG, QD

REACTIONS (2)
  - Treatment failure [Unknown]
  - Plasmodium malariae infection [Recovered/Resolved]

NARRATIVE: CASE EVENT DATE: 201301
